FAERS Safety Report 16114857 (Version 4)
Quarter: 2019Q2

REPORT INFORMATION
  Report Type: Report from Study
  Country: JP (occurrence: JP)
  Receive Date: 20190325
  Receipt Date: 20190614
  Transmission Date: 20190711
  Serious: Yes (Death)
  Sender: FDA-Public Use
  Company Number: JP-CELGENEUS-JPN-20190308731

PATIENT
  Age: 53 Year
  Sex: Female
  Weight: 69.1 kg

DRUGS (50)
  1. RISPERIDONE. [Concomitant]
     Active Substance: RISPERIDONE
     Indication: NEUROSIS
     Dosage: 2 MILLIGRAM
     Route: 048
  2. PROGRAF [Concomitant]
     Active Substance: TACROLIMUS\TACROLIMUS ANHYDROUS
     Indication: IMMUNOSUPPRESSANT DRUG THERAPY
     Dosage: 2 MILLIGRAM
     Route: 048
     Dates: start: 20181109, end: 20190212
  3. FILGRASTIM BS [Concomitant]
     Active Substance: FILGRASTIM
     Indication: WHITE BLOOD CELL COUNT DECREASED
     Dosage: 75 MICROGRAM
     Route: 058
     Dates: start: 20190107, end: 20190114
  4. CANCIDAS [Concomitant]
     Active Substance: CASPOFUNGIN ACETATE
     Indication: INFECTION PROPHYLAXIS
     Dosage: 70 MILLIGRAM
     Route: 041
     Dates: start: 20190115, end: 20190115
  5. HUMAN SERUM ALBUMIN [Concomitant]
     Active Substance: ALBUMIN HUMAN
     Indication: BLOOD ALBUMIN DECREASED
     Dosage: 12.5 GRAM
     Route: 041
     Dates: start: 20190118, end: 20190122
  6. WYSTAL [Concomitant]
     Active Substance: CEFOPERAZONE SODIUM\SULBACTAM SODIUM
     Indication: INFECTION PROPHYLAXIS
     Dosage: 1 GRAM
     Route: 041
     Dates: start: 20190124
  7. MELPHALAN. [Concomitant]
     Active Substance: MELPHALAN
     Indication: PRODUCT USED FOR UNKNOWN INDICATION
     Dosage: UNKNOWN
     Route: 065
     Dates: start: 20181103
  8. REVLIMID [Suspect]
     Active Substance: LENALIDOMIDE
     Dosage: 5 MILLIGRAM
     Route: 048
     Dates: start: 20190222, end: 20190228
  9. POTELIGEO [Suspect]
     Active Substance: MOGAMULIZUMAB-KPKC
     Dosage: 50 MILLIGRAM
     Route: 065
     Dates: start: 20190111, end: 20190111
  10. MIYA-BM [Concomitant]
     Active Substance: CLOSTRIDIUM BUTYRICUM SPORES STRAIN M-55
     Indication: DYSBIOSIS
     Dosage: UNKNOWN
     Route: 048
  11. OXINORM [Concomitant]
     Indication: PAIN
     Route: 048
     Dates: end: 20180122
  12. CALONAL [Concomitant]
     Active Substance: ACETAMINOPHEN
     Indication: PAIN
     Route: 048
  13. LEVOFLOXACIN. [Concomitant]
     Active Substance: LEVOFLOXACIN
     Indication: INFECTION PROPHYLAXIS
     Dosage: 500 MILLIGRAM
     Route: 048
     Dates: start: 20190101, end: 20190104
  14. CEFEPIME [Concomitant]
     Active Substance: CEFEPIME HYDROCHLORIDE
     Indication: INFECTION PROPHYLAXIS
     Dosage: 2 GRAM
     Route: 041
     Dates: start: 20190108, end: 20190110
  15. ACELIO [Concomitant]
     Active Substance: ACETAMINOPHEN
     Indication: PYREXIA
     Dosage: 1000 MILLIGRAM
     Route: 041
     Dates: start: 20190112
  16. VICCLOX [Concomitant]
     Active Substance: ACYCLOVIR SODIUM
     Indication: VIRAL INFECTION
     Dosage: 500 MILLIGRAM
     Route: 041
     Dates: start: 20190114
  17. RASURITEK [Concomitant]
     Active Substance: RASBURICASE
     Indication: PROPHYLAXIS
     Dosage: 7.5 MILLIGRAM
     Route: 041
     Dates: start: 20190117, end: 20190118
  18. FLUCONAZOLE. [Concomitant]
     Active Substance: FLUCONAZOLE
     Indication: ANTIFUNGAL TREATMENT
     Dosage: 100 MILLIGRAM
     Route: 048
  19. CEFDINIR. [Concomitant]
     Active Substance: CEFDINIR
     Indication: INFECTION PROPHYLAXIS
     Dosage: 100 MILLIGRAM
     Route: 048
     Dates: start: 20181227, end: 20181231
  20. LASIX [Concomitant]
     Active Substance: FUROSEMIDE
     Indication: FLUID RETENTION
     Dosage: 20 MILLIGRAM
     Route: 041
     Dates: start: 20190111, end: 20190118
  21. SOLDEM 1 [Concomitant]
     Active Substance: DEXTROSE\SODIUM CHLORIDE\SODIUM LACTATE
     Indication: DEHYDRATION
     Dosage: 500 MILLILITER
     Route: 041
     Dates: start: 20190117, end: 20190117
  22. FLUDARABINE [Concomitant]
     Active Substance: FLUDARABINE PHOSPHATE
     Indication: PRODUCT USED FOR UNKNOWN INDICATION
     Dosage: UNKNOWN
     Route: 065
     Dates: start: 20181103
  23. FULCALIQ [Concomitant]
     Active Substance: AMINO ACIDS\CARBOHYDRATES\ELECTROLYTES NOS\VITAMINS
     Indication: NUTRITIONAL SUPPLEMENTATION
     Dosage: 903 MILLILITER
     Route: 041
  24. PERAZOLIN [Concomitant]
     Active Substance: SOBUZOXANE
     Indication: ADULT T-CELL LYMPHOMA/LEUKAEMIA
     Dosage: 400 MILLIGRAM
     Route: 048
     Dates: start: 20181228, end: 20190102
  25. VALIXA [Concomitant]
     Active Substance: VALGANCICLOVIR
     Indication: VIRAL INFECTION
     Dosage: 450 MILLIGRAM
     Route: 048
     Dates: start: 20190101, end: 20190104
  26. ASPARA POTASSIUM [Concomitant]
     Active Substance: POTASSIUM ASPARTATE
     Indication: ELECTROLYTE IMBALANCE
     Dosage: 10 MILLIEQUIVALENTS
     Route: 041
     Dates: end: 20190106
  27. POTELIGEO [Suspect]
     Active Substance: MOGAMULIZUMAB-KPKC
     Indication: ADULT T-CELL LYMPHOMA/LEUKAEMIA
     Dosage: 50 MILLIGRAM
     Route: 065
     Dates: start: 20190105, end: 20190105
  28. TRAZENTA [Concomitant]
     Active Substance: LINAGLIPTIN
     Indication: DIABETES MELLITUS
     Dosage: 5 MILLIGRAM
     Route: 048
  29. URSODEOXYCHOLIC ACID [Concomitant]
     Active Substance: URSODIOL
     Indication: HEPATIC ENZYME
     Dosage: 300 MILLIGRAM
     Route: 048
  30. TAKECAB [Concomitant]
     Active Substance: VONOPRAZAN FUMURATE
     Indication: GASTRITIS PROPHYLAXIS
     Dosage: 10 MILLIGRAM
     Route: 048
  31. FOSCAVIR [Concomitant]
     Active Substance: FOSCARNET SODIUM
     Indication: VIRAL INFECTION
     Dosage: 6 GRAM
     Route: 041
     Dates: start: 20190105, end: 20190107
  32. ELCATONIN [Concomitant]
     Active Substance: ELCATONIN
     Indication: HYPERCALCAEMIA
     Route: 041
     Dates: start: 20190104, end: 20190117
  33. MYCOPHENOLATE MOFETIL. [Concomitant]
     Active Substance: MYCOPHENOLATE MOFETIL
     Indication: PROPHYLAXIS AGAINST GRAFT VERSUS HOST DISEASE
     Dosage: UNKNOWN
     Route: 065
     Dates: start: 20181109
  34. LYRICA [Concomitant]
     Active Substance: PREGABALIN
     Indication: PAIN
     Dosage: 150 MILLIGRAM
     Route: 048
  35. MEROPENEM. [Concomitant]
     Active Substance: MEROPENEM
     Indication: ANTIFUNGAL TREATMENT
     Dosage: 1 GRAM
     Route: 041
  36. VEPESID [Concomitant]
     Active Substance: ETOPOSIDE
     Indication: ADULT T-CELL LYMPHOMA/LEUKAEMIA
     Dosage: 25 MILLIGRAM
     Route: 048
     Dates: end: 20190102
  37. MAGNESIUM SULFATE. [Concomitant]
     Active Substance: MAGNESIUM SULFATE
     Indication: ELECTROLYTE IMBALANCE
     Dosage: 1 MILLIEQUIVALENTS
     Route: 041
     Dates: end: 20190106
  38. ETOPOSIDE. [Concomitant]
     Active Substance: ETOPOSIDE
     Indication: PRODUCT USED FOR UNKNOWN INDICATION
     Dosage: UNKNOWN
     Route: 024
     Dates: start: 20190116, end: 20190116
  39. CARBOPLATIN. [Concomitant]
     Active Substance: CARBOPLATIN
     Indication: PRODUCT USED FOR UNKNOWN INDICATION
     Dosage: UNKNOWN
     Route: 024
     Dates: start: 20190116, end: 20190116
  40. REVLIMID [Suspect]
     Active Substance: LENALIDOMIDE
     Indication: ADULT T-CELL LYMPHOMA/LEUKAEMIA
     Dosage: 5 MILLIGRAM
     Route: 048
     Dates: start: 20190124, end: 20190124
  41. DEPAS [Concomitant]
     Indication: INSOMNIA
     Dosage: 1 MILLIGRAM
     Route: 048
     Dates: end: 20190110
  42. BFLUID [Concomitant]
     Active Substance: AMINO ACIDS\DEXTROSE\ELECTROLYTES NOS\VITAMINS
     Indication: NUTRITIONAL SUPPLEMENTATION
     Dosage: 1000 MILLILITER
     Route: 041
     Dates: end: 20190106
  43. VINDESINE [Concomitant]
     Active Substance: VINDESINE
     Indication: PRODUCT USED FOR UNKNOWN INDICATION
     Dosage: UNKNOWN
     Route: 024
     Dates: start: 20190116, end: 20190116
  44. PREDNISOLONE. [Concomitant]
     Active Substance: PREDNISOLONE
     Indication: PRODUCT USED FOR UNKNOWN INDICATION
     Dosage: UNKNOWN
     Route: 024
     Dates: start: 20190116, end: 20190116
  45. PROGRAF [Concomitant]
     Active Substance: TACROLIMUS\TACROLIMUS ANHYDROUS
     Indication: PROPHYLAXIS AGAINST GRAFT VERSUS HOST DISEASE
  46. OSELTAMIVIR [Concomitant]
     Active Substance: OSELTAMIVIR
     Indication: VIRAL INFECTION
     Dosage: 75 MILLIGRAM
     Route: 048
     Dates: start: 20181225, end: 20181231
  47. SODIUM CHLORIDE. [Concomitant]
     Active Substance: SODIUM CHLORIDE
     Indication: ELECTROLYTE IMBALANCE
     Dosage: 20 MILLILITER
     Route: 041
     Dates: end: 20190106
  48. SOLDEM 3A [Concomitant]
     Active Substance: CARBOHYDRATES\POTASSIUM CHLORIDE\SODIUM CHLORIDE\SODIUM LACTATE
     Indication: DEHYDRATION
     Dosage: 500 MILLILITER
     Route: 041
     Dates: start: 20190112, end: 20190114
  49. CUBICIN [Concomitant]
     Active Substance: DAPTOMYCIN
     Indication: INFECTION PROPHYLAXIS
     Dosage: 350 MILLIGRAM
     Route: 041
     Dates: start: 20190115
  50. TAZOPIPE [Concomitant]
     Active Substance: PIPERACILLIN SODIUM\TAZOBACTAM SODIUM
     Indication: INFECTION PROPHYLAXIS
     Dosage: 4.5 GRAM
     Route: 041
     Dates: start: 20190124

REACTIONS (1)
  - Graft versus host disease in skin [Fatal]

NARRATIVE: CASE EVENT DATE: 20190301
